FAERS Safety Report 5082889-9 (Version None)
Quarter: 2006Q3

REPORT INFORMATION
  Report Type: 
  Country: None (occurrence: None)
  Receive Date: 20060817
  Receipt Date: 20060714
  Transmission Date: 20061208
  Serious: Yes (Death, Hospitalization)
  Sender: FDA-Public Use
  Company Number: AR-BOEHRINGER INGELHEIM PHARMACEUTICALS, INC.-2006-BP-08110RA

PATIENT
  Sex: Male
  Weight: 40 kg

DRUGS (1)
  1. TIPRANAVIR/RITONAVIR SOLUTION [Suspect]
     Indication: HIV INFECTION
     Dosage: 800 MG/320 MG TPV/RTV
     Route: 048
     Dates: start: 20040518, end: 20060711

REACTIONS (3)
  - ACUTE ABDOMEN [None]
  - GASTROINTESTINAL HAEMORRHAGE [None]
  - HAEMATEMESIS [None]
